FAERS Safety Report 9425212 (Version 2)
Quarter: 2013Q3

REPORT INFORMATION
  Report Type: Spontaneous
  Country: JP (occurrence: JP)
  Receive Date: 20130729
  Receipt Date: 20130807
  Transmission Date: 20140515
  Serious: Yes (Other)
  Sender: FDA-Public Use
  Company Number: JP-PFIZER INC-2013216069

PATIENT
  Sex: Male

DRUGS (12)
  1. PRODIF [Suspect]
     Route: 042
  2. DALACIN [Suspect]
  3. ITRIZOLE [Concomitant]
     Route: 048
  4. CRESTOR [Concomitant]
     Route: 048
  5. THYRADIN [Concomitant]
     Route: 048
  6. BAYASPIRIN [Concomitant]
     Route: 048
  7. BAKTAR [Concomitant]
     Route: 048
  8. FLUITRAN [Concomitant]
     Route: 048
  9. HERBESSER R [Concomitant]
     Route: 048
  10. SOLITA T [Concomitant]
  11. PREDONINE [Concomitant]
  12. ZOSYN [Concomitant]

REACTIONS (2)
  - Lactic acidosis [Unknown]
  - Disseminated intravascular coagulation [Unknown]
